FAERS Safety Report 7455888-7 (Version None)
Quarter: 2011Q2

REPORT INFORMATION
  Report Type: 
  Country: None (occurrence: None)
  Receive Date: 20110503
  Receipt Date: 20110426
  Transmission Date: 20111010
  Serious: Yes (Other)
  Sender: FDA-Public Use
  Company Number: A0925396A

PATIENT
  Sex: Female

DRUGS (3)
  1. CLINDAMYCIN [Concomitant]
  2. BETA BLOCKER [Concomitant]
  3. RYTHMOL [Suspect]
     Route: 048

REACTIONS (4)
  - CARDIAC ABLATION [None]
  - ATRIAL FLUTTER [None]
  - CARDIOVERSION [None]
  - ATRIAL FIBRILLATION [None]
